FAERS Safety Report 4674376-4 (Version None)
Quarter: 2005Q2

REPORT INFORMATION
  Report Type: 
  Country: None (occurrence: None)
  Receive Date: 20050524
  Receipt Date: 20050509
  Transmission Date: 20051028
  Serious: Yes (Hospitalization, Other)
  Sender: FDA-Public Use
  Company Number: US_0410106308

PATIENT
  Age: 23 Year
  Sex: Male
  Weight: 122 kg

DRUGS (24)
  1. ZYPREXA [Suspect]
     Dosage: 7 MG/1 DAY
     Dates: start: 20000413, end: 20031029
  2. ABILIFY [Concomitant]
  3. RISPERIDONE [Concomitant]
  4. HALDOL(HALOPERIDOL DECANOATE) [Concomitant]
  5. TOFRANIL-PM(IMIPRAMINE EMBONATE) [Concomitant]
  6. GLIPIZIDE [Concomitant]
  7. ACTOS [Concomitant]
  8. CLONIDINE [Concomitant]
  9. TOPIRAMATE [Concomitant]
  10. ZONISAMIDE [Concomitant]
  11. ATORVASTATN CALCIUM [Concomitant]
  12. METFORMIN [Concomitant]
  13. ACETAMINOPHEN [Concomitant]
  14. ZOCOR (SIMVASTATIN RATIOPHARM) [Concomitant]
  15. CLONAZEPAM [Concomitant]
  16. INSULIN [Concomitant]
  17. NPH INSULIN [Concomitant]
  18. PREVACID [Concomitant]
  19. CARBAMAZEPINE [Concomitant]
  20. LAMOTRIGINE [Concomitant]
  21. RANITIDINE [Concomitant]
  22. NOVOLIN N [Concomitant]
  23. NOVOLIN R [Concomitant]
  24. PRILOSEC [Concomitant]

REACTIONS (34)
  - AGGRESSION [None]
  - ALANINE AMINOTRANSFERASE INCREASED [None]
  - ASPARTATE AMINOTRANSFERASE INCREASED [None]
  - BLOOD CHLORIDE INCREASED [None]
  - BLOOD CHOLESTEROL INCREASED [None]
  - BLOOD GASTRIN INCREASED [None]
  - BLOOD TRIGLYCERIDES INCREASED [None]
  - COMMUNICATION DISORDER [None]
  - CONTUSION [None]
  - CONVULSION [None]
  - DECREASED ACTIVITY [None]
  - DEPRESSION [None]
  - DIABETES MELLITUS [None]
  - DIABETIC COMA [None]
  - DIABETIC KETOACIDOSIS [None]
  - DYSPEPSIA [None]
  - ELECTROENCEPHALOGRAM ABNORMAL [None]
  - GLYCOSYLATED HAEMOGLOBIN INCREASED [None]
  - HYPERGLYCAEMIA [None]
  - HYPOKINESIA [None]
  - INSOMNIA [None]
  - LABORATORY TEST ABNORMAL [None]
  - MYOCLONIC EPILEPSY [None]
  - NERVOUSNESS [None]
  - PAIN IN EXTREMITY [None]
  - PANCREATITIS [None]
  - PHOTOSENSITIVITY REACTION [None]
  - POLLAKIURIA [None]
  - RASH [None]
  - SLEEP APNOEA SYNDROME [None]
  - SOMNOLENCE [None]
  - THYROXINE DECREASED [None]
  - WEIGHT INCREASED [None]
  - WHITE BLOOD CELL COUNT DECREASED [None]
